FAERS Safety Report 4638232-X (Version None)
Quarter: 2005Q2

REPORT INFORMATION
  Report Type: 
  Country: None (occurrence: None)
  Receive Date: 20050418
  Receipt Date: 20050328
  Transmission Date: 20051028
  Serious: Yes (Other)
  Sender: FDA-Public Use
  Company Number: USA050394243

PATIENT
  Age: 88 Year
  Sex: Female

DRUGS (1)
  1. FORTEO [Suspect]
     Dates: start: 20041202, end: 20050318

REACTIONS (5)
  - BACK PAIN [None]
  - FALL [None]
  - FULL BLOOD COUNT DECREASED [None]
  - MULTIPLE MYELOMA [None]
  - PHARMACEUTICAL PRODUCT COMPLAINT [None]
